FAERS Safety Report 17032921 (Version 3)
Quarter: 2019Q4

REPORT INFORMATION
  Report Type: Spontaneous
  Country: US (occurrence: US)
  Receive Date: 20191114
  Receipt Date: 20191227
  Transmission Date: 20200122
  Serious: Yes (Hospitalization, Other)
  Sender: FDA-Public Use
  Company Number: US-BIOMARINAP-US-2019-126823

PATIENT
  Age: 10 Year
  Sex: Female

DRUGS (1)
  1. VIMIZIM [Suspect]
     Active Substance: ELOSULFASE ALFA
     Indication: MUCOPOLYSACCHARIDOSIS IV
     Dosage: 50 MILLIGRAM
     Route: 042
     Dates: start: 2013

REACTIONS (4)
  - Gait disturbance [Unknown]
  - Spinal cord compression [Unknown]
  - Product dose omission [Unknown]
  - Quadriparesis [Unknown]

NARRATIVE: CASE EVENT DATE: 2018
